FAERS Safety Report 19947711 (Version 4)
Quarter: 2022Q1

REPORT INFORMATION
  Report Type: Report from Study
  Country: ES (occurrence: ES)
  Receive Date: 20211012
  Receipt Date: 20220118
  Transmission Date: 20220423
  Serious: Yes (Hospitalization)
  Sender: FDA-Public Use
  Company Number: ES-ABBVIE-21K-144-4115165-00

PATIENT
  Age: 26 Year
  Sex: Female
  Weight: 53 kg

DRUGS (6)
  1. HUMIRA [Suspect]
     Active Substance: ADALIMUMAB
     Indication: Colitis ulcerative
     Route: 058
     Dates: start: 20131002, end: 20150929
  2. VEDOLIZUMAB [Concomitant]
     Active Substance: VEDOLIZUMAB
     Indication: Colitis ulcerative
     Dosage: INDUCTION: WEEK 0, WEEK 2 AND WEEK 6?MAINTENANCE: EVERY 8 WEEKS
     Route: 041
     Dates: start: 20151119
  3. CARVEDILOL [Concomitant]
     Active Substance: CARVEDILOL
     Indication: Colitis ulcerative
     Route: 048
     Dates: start: 20150925
  4. FUCIDINE [Concomitant]
     Indication: Psoriasis
     Dosage: 20 MG/G
     Route: 061
     Dates: start: 20160104
  5. FUCIDINE [Concomitant]
     Indication: Psoriasis
  6. CYCLOSPORINE [Concomitant]
     Active Substance: CYCLOSPORINE
     Indication: Colitis ulcerative
     Route: 042
     Dates: start: 20170603

REACTIONS (1)
  - Granulomatous lymphadenitis [Not Recovered/Not Resolved]

NARRATIVE: CASE EVENT DATE: 20211006
